FAERS Safety Report 4479148-1 (Version None)
Quarter: 2004Q3

REPORT INFORMATION
  Report Type: 
  Country: None (occurrence: None)
  Receive Date: 20040923
  Receipt Date: 20040617
  Transmission Date: 20050211
  Serious: Yes (Hospitalization)
  Sender: FDA-Public Use
  Company Number: 207263

PATIENT
  Age: 55 Year
  Sex: Female
  Weight: 65 kg

DRUGS (14)
  1. AVASTIN [Suspect]
     Indication: COLORECTAL CANCER METASTATIC
     Dosage: 330 MG, Q2W, INTRAVENOUS
     Route: 042
     Dates: start: 20040324, end: 20040407
  2. FLUOROURACIL [Concomitant]
  3. LEUCOVORIN CALCIUM [Concomitant]
  4. OXALIPLATIN [Concomitant]
  5. NEURONTIN [Concomitant]
  6. PROTONIX [Concomitant]
  7. NYSTATIN [Concomitant]
  8. HYDROCODONE BITARTRATE [Concomitant]
  9. RESTORIL [Concomitant]
  10. LORTAB [Concomitant]
  11. RESTORIL [Concomitant]
  12. LORTAB [Concomitant]
  13. PRILOSEC [Concomitant]
  14. MAALOX (ALUMINUM HYDROXIDE, MAGNESIUM HYDROXIDE) [Concomitant]

REACTIONS (2)
  - ABDOMINAL ABSCESS [None]
  - GASTROINTESTINAL PERFORATION [None]
